FAERS Safety Report 5191538-0 (Version None)
Quarter: 2006Q4

REPORT INFORMATION
  Report Type: 
  Country: None (occurrence: None)
  Receive Date: 20061219
  Receipt Date: 20061206
  Transmission Date: 20070319
  Serious: Yes (Other)
  Sender: FDA-Public Use
  Company Number: 2006111220

PATIENT
  Age: 49 Year
  Sex: Male

DRUGS (1)
  1. DILANTIN [Suspect]
     Indication: CONVULSION PROPHYLAXIS
     Dates: start: 20030301

REACTIONS (11)
  - DRUG ERUPTION [None]
  - EAR HAEMORRHAGE [None]
  - EPISTAXIS [None]
  - HYPERSENSITIVITY [None]
  - INFLUENZA [None]
  - MOUTH HAEMORRHAGE [None]
  - NAIL DISORDER [None]
  - SCAR [None]
  - SKIN EXFOLIATION [None]
  - TOOTH LOSS [None]
  - TOXIC EPIDERMAL NECROLYSIS [None]
